FAERS Safety Report 5277211-9 (Version None)
Quarter: 2007Q1

REPORT INFORMATION
  Report Type: 
  Country: None (occurrence: None)
  Receive Date: 20061212
  Receipt Date: 20060705
  Transmission Date: 20070707
  Serious: Yes (Hospitalization)
  Sender: FDA-Public Use
  Company Number: 2006UW13853

PATIENT
  Age: 28 Year
  Sex: Male

DRUGS (2)
  1. SEROQUEL [Suspect]
     Dosage: 50 MG BID PO
     Route: 048
  2. SEROQUEL [Suspect]
     Dosage: 100 MG HS PO
     Route: 048

REACTIONS (3)
  - AGITATION [None]
  - HALLUCINATION, VISUAL [None]
  - INSOMNIA [None]
